FAERS Safety Report 7535116-4 (Version None)
Quarter: 2011Q2

REPORT INFORMATION
  Report Type: 
  Country: None (occurrence: None)
  Receive Date: 20110609
  Receipt Date: 20110602
  Transmission Date: 20111010
  Serious: No
  Sender: FDA-Public Use
  Company Number: US-BIOGENIDEC-2011BI020584

PATIENT
  Age: 44 Year
  Sex: Male

DRUGS (2)
  1. TYSABRI [Suspect]
     Indication: MULTIPLE SCLEROSIS
     Route: 042
     Dates: start: 20110531
  2. MUSCLE RELAXER (NOS) [Concomitant]

REACTIONS (4)
  - ERYTHEMA [None]
  - JUGULAR VEIN DISTENSION [None]
  - CHEST DISCOMFORT [None]
  - HYPERTENSION [None]
